FAERS Safety Report 4954127-6 (Version None)
Quarter: 2006Q1

REPORT INFORMATION
  Report Type: 
  Country: None (occurrence: None)
  Receive Date: 20060327
  Receipt Date: 20060207
  Transmission Date: 20060701
  Serious: Yes (Other)
  Sender: FDA-Public Use
  Company Number: DE-GLAXOSMITHKLINE-D0048685A

PATIENT
  Age: 71 Year
  Sex: Female
  Weight: 50 kg

DRUGS (5)
  1. LAMICTAL [Suspect]
     Indication: EPILEPSY
     Dosage: 100MG TWICE PER DAY
     Route: 065
     Dates: start: 20030101
  2. AGGRENOX [Concomitant]
     Route: 065
     Dates: start: 20040701
  3. XIMOVAN [Concomitant]
     Indication: INSOMNIA
     Route: 065
     Dates: start: 20030901
  4. GASTROSIL [Concomitant]
     Indication: NAUSEA
     Route: 065
     Dates: start: 20030101
  5. OSSOFORTIN [Concomitant]
     Indication: OSTEOPOROSIS
     Route: 065

REACTIONS (4)
  - HYPERCALCAEMIA [None]
  - HYPERNATRAEMIA [None]
  - HYPERPHOSPHATAEMIA [None]
  - LEUKOPENIA [None]
